FAERS Safety Report 7270283-1 (Version None)
Quarter: 2011Q1

REPORT INFORMATION
  Report Type: 
  Country: None (occurrence: None)
  Receive Date: 20110202
  Receipt Date: 20110127
  Transmission Date: 20110831
  Serious: Yes (Hospitalization)
  Sender: FDA-Public Use
  Company Number: FR-KINGPHARMUSA00001-K201100112

PATIENT
  Age: 74 Year
  Sex: Female

DRUGS (10)
  1. SIMVASTATIN [Concomitant]
  2. WARAN [Concomitant]
     Dosage: 2.5 MG, UNK
  3. VERAPAMIL [Concomitant]
     Dosage: UNK
     Dates: end: 20090106
  4. FORMOTEROL W/BUDESONIDE [Concomitant]
  5. SPIRIVA [Concomitant]
  6. ALTACE [Suspect]
     Dosage: 5 MG, QD
     Route: 048
     Dates: start: 20090106
  7. FURIX [Suspect]
     Dosage: 40 MG, PRN
     Route: 048
     Dates: start: 20080507
  8. BISOPROLOL [Concomitant]
     Dosage: UNK
     Dates: end: 20090106
  9. ALTACE [Suspect]
     Indication: HYPERTENSION
     Dosage: 10 MG, QD
     Route: 048
     Dates: start: 20080501, end: 20090106
  10. FURIX [Suspect]
     Indication: HYPERTENSION
     Dosage: 40 MG, UNK
     Route: 048
     Dates: start: 20080501, end: 20080506

REACTIONS (6)
  - DIZZINESS [None]
  - HYPERKALAEMIA [None]
  - HYPOVOLAEMIA [None]
  - BRADYCARDIA [None]
  - BLOOD CREATININE INCREASED [None]
  - RENAL FAILURE [None]
